FAERS Safety Report 5914056-8 (Version None)
Quarter: 2008Q4

REPORT INFORMATION
  Report Type: 
  Country: None (occurrence: None)
  Receive Date: 20081009
  Receipt Date: 20080930
  Transmission Date: 20090506
  Serious: Yes (Other)
  Sender: FDA-Public Use
  Company Number: CA-WYE-H06259508

PATIENT
  Age: 56 Year
  Sex: Female

DRUGS (5)
  1. PANTOPRAZOLE SODIUM [Suspect]
     Indication: GASTROOESOPHAGEAL REFLUX DISEASE
     Dosage: TWICE DAILY DOSE UNSPECIFIED
     Route: 048
     Dates: start: 20000101, end: 20060101
  2. NEXIUM [Concomitant]
     Indication: GASTROOESOPHAGEAL REFLUX DISEASE
     Dosage: UNSPECIFIED
     Dates: start: 20000101, end: 20060101
  3. OMEPRAZOLE [Concomitant]
     Indication: GASTROOESOPHAGEAL REFLUX DISEASE
     Dosage: UNSPECIFIED
     Dates: start: 20000101, end: 20060101
  4. OMEPRAZOLE [Concomitant]
     Dosage: UNSPECIFIED
     Dates: start: 20060206
  5. RABEPRAZOLE SODIUM [Concomitant]
     Dosage: UNSPECIFIED
     Dates: start: 20000101, end: 20060101

REACTIONS (1)
  - EROSIVE OESOPHAGITIS [None]
